FAERS Safety Report 9503921 (Version 1)
Quarter: 2013Q3

REPORT INFORMATION
  Report Type: Spontaneous
  Country: US (occurrence: US)
  Receive Date: 20130906
  Receipt Date: 20130906
  Transmission Date: 20140515
  Serious: No
  Sender: FDA-Public Use
  Company Number: US-TEVA-430169USA

PATIENT
  Age: 49 Year
  Sex: Female
  Weight: 54.48 kg

DRUGS (1)
  1. PARAGARD 380A [Suspect]
     Indication: CONTRACEPTION
     Dates: start: 20130711, end: 20130829

REACTIONS (2)
  - Device expulsion [Recovered/Resolved]
  - Discomfort [Unknown]
